FAERS Safety Report 7164122-7 (Version None)
Quarter: 2010Q4

REPORT INFORMATION
  Report Type: 
  Country: None (occurrence: None)
  Receive Date: 20101215
  Receipt Date: 20101209
  Transmission Date: 20110411
  Serious: Yes (Hospitalization)
  Sender: FDA-Public Use
  Company Number: BE-ABBOTT-10P-013-0690384-00

PATIENT
  Sex: Female
  Weight: 55 kg

DRUGS (5)
  1. HUMIRA [Suspect]
     Indication: CROHN'S DISEASE
     Dosage: 160MG LOADING DOSE
     Dates: start: 20101020, end: 20101103
  2. HUMIRA [Suspect]
     Dosage: ONCE
     Dates: start: 20101103
  3. MEDROL [Concomitant]
     Indication: PRODUCT USED FOR UNKNOWN INDICATION
     Dosage: 8MG DAILY
     Route: 048
  4. PANTOMED [Concomitant]
     Indication: PRODUCT USED FOR UNKNOWN INDICATION
     Route: 048
  5. STEOVIT D3 [Concomitant]
     Indication: PRODUCT USED FOR UNKNOWN INDICATION
     Route: 048

REACTIONS (6)
  - ABDOMINAL PAIN [None]
  - CAECITIS [None]
  - CROHN'S DISEASE [None]
  - GASTROINTESTINAL INFLAMMATION [None]
  - ILEITIS [None]
  - LEUKOCYTOSIS [None]
